FAERS Safety Report 8913990 (Version 1)
Quarter: 2012Q4

REPORT INFORMATION
  Report Type: 
  Country: AR (occurrence: AR)
  Receive Date: 20121119
  Receipt Date: 20121119
  Transmission Date: 20130627
  Serious: Yes (Other)
  Sender: FDA-Public Use
  Company Number: AR-ELI_LILLY_AND_COMPANY-AR201211002200

PATIENT
  Age: 78 Year
  Sex: Male

DRUGS (4)
  1. HUMALOG LISPRO [Suspect]
     Dosage: UNK UNK, unknown
  2. HUMULIN NPH [Suspect]
     Dosage: UNK UNK, unknown
  3. MEPREDNISONE [Concomitant]
     Dosage: 40 mg, unknown
     Dates: start: 201210
  4. CIPROVIT CALCICO [Concomitant]
     Dosage: UNK, unknown
     Dates: start: 201210

REACTIONS (1)
  - Haematochezia [Unknown]
